FAERS Safety Report 4818459-4 (Version None)
Quarter: 2005Q4

REPORT INFORMATION
  Report Type: 
  Country: None (occurrence: None)
  Receive Date: 20051102
  Receipt Date: 20050902
  Transmission Date: 20060501
  Serious: Yes (Hospitalization, Disabling, Other)
  Sender: FDA-Public Use
  Company Number: GB-BRISTOL-MYERS SQUIBB COMPANY-13100326

PATIENT
  Age: 36 Year
  Sex: Male
  Weight: 89 kg

DRUGS (7)
  1. REYATAZ [Suspect]
     Indication: HIV INFECTION
     Route: 048
     Dates: start: 20050609, end: 20050823
  2. LAMIVUDINE [Concomitant]
     Indication: HIV INFECTION
     Route: 048
     Dates: start: 20050609
  3. ABACAVIR SULFATE [Concomitant]
     Route: 048
     Dates: start: 20050609
  4. KALETRA [Concomitant]
     Indication: HIV INFECTION
     Dosage: STOPPED ON 09-JUNE 2005, RE-STARTED 23-AUG-2005
     Route: 048
     Dates: start: 20040801, end: 20050609
  5. COMBIVIR [Concomitant]
     Indication: HIV INFECTION
     Dosage: 300 MG / 600 MG
     Route: 048
     Dates: start: 20040801, end: 20050609
  6. RITONAVIR [Concomitant]
     Indication: HIV INFECTION
     Route: 048
     Dates: start: 20050609, end: 20050823
  7. ACYCLOVIR [Concomitant]
     Route: 048
     Dates: start: 20050405

REACTIONS (2)
  - BLOOD GLUCOSE INCREASED [None]
  - VISION BLURRED [None]
